FAERS Safety Report 11816598 (Version 1)
Quarter: 2015Q4

REPORT INFORMATION
  Report Type: Spontaneous
  Country: JP (occurrence: JP)
  Receive Date: 20151210
  Receipt Date: 20151210
  Transmission Date: 20160305
  Serious: Yes (Death)
  Sender: FDA-Public Use
  Company Number: JP-ROCHE-1649607

PATIENT
  Age: 71 Year
  Sex: Female
  Weight: 55 kg

DRUGS (8)
  1. PACLITAXEL. [Concomitant]
     Active Substance: PACLITAXEL
     Indication: OVARIAN CANCER
     Route: 041
     Dates: start: 20140409, end: 20141211
  2. CODEINE PHOSPHATE [Concomitant]
     Active Substance: CODEINE PHOSPHATE
     Indication: DIARRHOEA
     Route: 048
     Dates: start: 20140409, end: 20140423
  3. LOPEMIN (JAPAN) [Concomitant]
     Indication: DIARRHOEA
     Dosage: DOSAGE IS UNCERTAIN. ?FOR TON
     Route: 048
     Dates: start: 20140416, end: 20140423
  4. GLACTIV [Concomitant]
     Active Substance: SITAGLIPTIN
     Indication: DIABETES MELLITUS
     Route: 048
     Dates: start: 20121101
  5. AVASTIN [Suspect]
     Active Substance: BEVACIZUMAB
     Indication: OVARIAN CANCER
     Route: 041
     Dates: start: 20140409, end: 20141211
  6. DEXART [Concomitant]
     Active Substance: DEXAMETHASONE SODIUM PHOSPHATE
     Indication: OVARIAN CANCER
     Route: 042
     Dates: start: 20140409, end: 20141211
  7. ZANTAC [Concomitant]
     Active Substance: RANITIDINE HYDROCHLORIDE
     Indication: OVARIAN CANCER
     Route: 042
     Dates: start: 20140409, end: 20141211
  8. RESTAMIN [Concomitant]
     Active Substance: DIPHENHYDRAMINE
     Route: 048
     Dates: start: 20140409, end: 20141211

REACTIONS (2)
  - Proteinuria [Not Recovered/Not Resolved]
  - Ovarian cancer [Fatal]

NARRATIVE: CASE EVENT DATE: 20141211
